FAERS Safety Report 17411453 (Version 1)
Quarter: 2020Q1

REPORT INFORMATION
  Report Type: Spontaneous
  Country: US (occurrence: US)
  Receive Date: 20200212
  Receipt Date: 20200212
  Transmission Date: 20200409
  Serious: Yes (Death, Hospitalization, Other)
  Sender: FDA-Public Use
  Company Number: US-ABBVIE-20K-163-3272591-00

PATIENT
  Age: 60 Year
  Sex: Male
  Weight: 198.4 kg

DRUGS (21)
  1. VITAMIN D3 [Concomitant]
     Active Substance: CHOLECALCIFEROL
     Indication: PRODUCT USED FOR UNKNOWN INDICATION
  2. MAGNESIUM AMINO ACID CHELATE [Concomitant]
     Active Substance: MAGNESIUM
     Indication: PRODUCT USED FOR UNKNOWN INDICATION
  3. PEN VK [Concomitant]
     Active Substance: PENICILLIN V POTASSIUM
     Indication: PRODUCT USED FOR UNKNOWN INDICATION
  4. JAKAFI [Suspect]
     Active Substance: RUXOLITINIB
     Indication: STEM CELL TRANSPLANT
     Route: 048
     Dates: start: 20181212, end: 20190808
  5. FOLIC ACID. [Concomitant]
     Active Substance: FOLIC ACID
     Indication: PRODUCT USED FOR UNKNOWN INDICATION
  6. CRESTOR [Concomitant]
     Active Substance: ROSUVASTATIN CALCIUM
     Indication: PRODUCT USED FOR UNKNOWN INDICATION
  7. ROBAXIN [Concomitant]
     Active Substance: METHOCARBAMOL
     Indication: PRODUCT USED FOR UNKNOWN INDICATION
  8. LOPRESSOR [Concomitant]
     Active Substance: METOPROLOL TARTRATE
     Indication: PRODUCT USED FOR UNKNOWN INDICATION
  9. CYMBALTA [Concomitant]
     Active Substance: DULOXETINE HYDROCHLORIDE
     Indication: PRODUCT USED FOR UNKNOWN INDICATION
  10. GLUCOPHAGE [Concomitant]
     Active Substance: METFORMIN HYDROCHLORIDE
     Indication: PRODUCT USED FOR UNKNOWN INDICATION
  11. FLOMAX [Concomitant]
     Active Substance: TAMSULOSIN HYDROCHLORIDE
     Indication: PRODUCT USED FOR UNKNOWN INDICATION
  12. IMBRUVICA [Suspect]
     Active Substance: IBRUTINIB
     Indication: PRODUCT USED FOR UNKNOWN INDICATION
     Dosage: 4 TIMES PER WEEK
     Route: 048
     Dates: start: 20190722
  13. LASIX [Suspect]
     Active Substance: FUROSEMIDE
     Indication: PRODUCT USED FOR UNKNOWN INDICATION
     Route: 065
  14. VALCYTE [Concomitant]
     Active Substance: VALGANCICLOVIR HYDROCHLORIDE
     Indication: PRODUCT USED FOR UNKNOWN INDICATION
  15. NOXAFIL [Concomitant]
     Active Substance: POSACONAZOLE
     Indication: PRODUCT USED FOR UNKNOWN INDICATION
  16. PEPCID [Concomitant]
     Active Substance: FAMOTIDINE
     Indication: PRODUCT USED FOR UNKNOWN INDICATION
  17. PRINIVIL [Concomitant]
     Active Substance: LISINOPRIL
     Indication: PRODUCT USED FOR UNKNOWN INDICATION
  18. LACRILUBE [Concomitant]
     Indication: PRODUCT USED FOR UNKNOWN INDICATION
  19. BASAGLAR [Concomitant]
     Active Substance: INSULIN GLARGINE
     Indication: PRODUCT USED FOR UNKNOWN INDICATION
  20. NOVOLOG [Concomitant]
     Active Substance: INSULIN ASPART
     Indication: PRODUCT USED FOR UNKNOWN INDICATION
  21. ACTIGALL [Concomitant]
     Active Substance: URSODIOL
     Indication: PRODUCT USED FOR UNKNOWN INDICATION

REACTIONS (49)
  - Acute myeloid leukaemia [Fatal]
  - Hallucination [Unknown]
  - Immunodeficiency [Unknown]
  - Hypoglycaemia [Unknown]
  - Faeces soft [Unknown]
  - Pain in extremity [Recovering/Resolving]
  - Central obesity [Unknown]
  - Dysuria [Unknown]
  - Chronic myelomonocytic leukaemia [Fatal]
  - Osteonecrosis [Unknown]
  - Orthostatic hypotension [Unknown]
  - Fall [Unknown]
  - Lacrimation increased [Unknown]
  - Osteoarthritis [Unknown]
  - Mouth ulceration [Unknown]
  - Pain [Recovering/Resolving]
  - Anaemia [Unknown]
  - Graft versus host disease in skin [Recovered/Resolved with Sequelae]
  - Cytomegalovirus infection [Unknown]
  - Soft tissue infection [Unknown]
  - Myopathy [Unknown]
  - Dyspnoea [Unknown]
  - Skin exfoliation [Unknown]
  - Dry eye [Unknown]
  - Hypoaesthesia [Unknown]
  - Gastrointestinal sounds abnormal [Unknown]
  - Muscle oedema [Unknown]
  - Skin laceration [Unknown]
  - Lichenification [Unknown]
  - Blood count abnormal [Unknown]
  - Bone pain [Unknown]
  - Pyrexia [Unknown]
  - Depression [Unknown]
  - Gait disturbance [Unknown]
  - Tongue disorder [Unknown]
  - Pruritus [Unknown]
  - Erythema [Unknown]
  - Osteopenia [Unknown]
  - Acute respiratory failure [Unknown]
  - Muscular weakness [Unknown]
  - Male reproductive tract disorder [Unknown]
  - Gram stain positive [Unknown]
  - Oedema peripheral [Unknown]
  - Pneumonia [Unknown]
  - Neutropenia [Unknown]
  - Dry mouth [Recovering/Resolving]
  - Limb discomfort [Unknown]
  - Arthralgia [Unknown]
  - Asthenia [Unknown]
